FAERS Safety Report 15699920 (Version 1)
Quarter: 2018Q4

REPORT INFORMATION
  Report Type: Spontaneous
  Country: US (occurrence: US)
  Receive Date: 20181207
  Receipt Date: 20181207
  Transmission Date: 20190205
  Serious: Yes (Hospitalization, Other)
  Sender: FDA-Public Use
  Company Number: US-JNJFOC-20181200179

PATIENT
  Age: 44 Year
  Sex: Male
  Weight: 90.72 kg

DRUGS (4)
  1. TOPAMAX [Suspect]
     Active Substance: TOPIRAMATE
     Indication: POST-TRAUMATIC EPILEPSY
     Route: 048
     Dates: start: 201811
  2. TOPAMAX [Suspect]
     Active Substance: TOPIRAMATE
     Indication: POST-TRAUMATIC EPILEPSY
     Route: 048
     Dates: start: 201806, end: 201806
  3. LORAZEPAM. [Suspect]
     Active Substance: LORAZEPAM
     Indication: POST-TRAUMATIC EPILEPSY
     Route: 048
  4. DEPAKOTE [Suspect]
     Active Substance: DIVALPROEX SODIUM
     Indication: POST-TRAUMATIC EPILEPSY
     Route: 048

REACTIONS (4)
  - Weight decreased [Not Recovered/Not Resolved]
  - Seizure [Recovered/Resolved]
  - Vomiting [Recovering/Resolving]
  - Cognitive disorder [Not Recovered/Not Resolved]

NARRATIVE: CASE EVENT DATE: 201811
